FAERS Safety Report 11644121 (Version 1)
Quarter: 2015Q4

REPORT INFORMATION
  Report Type: Spontaneous
  Country: US (occurrence: None)
  Receive Date: 20151019
  Receipt Date: 20151019
  Transmission Date: 20160304
  Serious: Yes (Disabling)
  Sender: FDA-Public Use
  Company Number: None

PATIENT
  Age: 49 Year
  Sex: Male
  Weight: 74.84 kg

DRUGS (1)
  1. LEVAQUIN [Suspect]
     Active Substance: LEVOFLOXACIN
     Indication: ATYPICAL PNEUMONIA
     Dosage: TAKEN BY MOUTH
     Route: 048

REACTIONS (5)
  - Arthralgia [None]
  - Depressed mood [None]
  - Tendon pain [None]
  - Gait disturbance [None]
  - Mental disorder [None]

NARRATIVE: CASE EVENT DATE: 20150919
